FAERS Safety Report 21703945 (Version 3)
Quarter: 2024Q2

REPORT INFORMATION
  Report Type: Report from Study
  Country: US (occurrence: US)
  Receive Date: 20221209
  Receipt Date: 20240417
  Transmission Date: 20240715
  Serious: Yes (Other)
  Sender: FDA-Public Use
  Company Number: US-ABBVIE-4229624

PATIENT
  Sex: Male
  Weight: 109 kg

DRUGS (1)
  1. RINVOQ [Suspect]
     Active Substance: UPADACITINIB
     Indication: Rheumatoid arthritis
     Route: 048
     Dates: start: 2019

REACTIONS (3)
  - Arthritis [Unknown]
  - Myalgia [Unknown]
  - Foot fracture [Unknown]

NARRATIVE: CASE EVENT DATE: 20220101
